FAERS Safety Report 25539283 (Version 1)
Quarter: 2025Q3

REPORT INFORMATION
  Report Type: Spontaneous
  Country: US (occurrence: None)
  Receive Date: 20250709
  Receipt Date: 20250709
  Transmission Date: 20251021
  Serious: Yes (Death)
  Sender: FDA-CTU
  Company Number: None

PATIENT
  Age: 34 Year
  Sex: Female

DRUGS (1)
  1. TACROLIMUS [Suspect]
     Active Substance: TACROLIMUS

REACTIONS (8)
  - Renal failure [None]
  - Acute respiratory failure [None]
  - Hypoxia [None]
  - Upper gastrointestinal haemorrhage [None]
  - Blood loss anaemia [None]
  - Sepsis [None]
  - Pancytopenia [None]
  - Breast cancer metastatic [None]
